FAERS Safety Report 13008700 (Version 1)
Quarter: 2016Q4

REPORT INFORMATION
  Report Type: Report from Study
  Country: US (occurrence: US)
  Receive Date: 20161208
  Receipt Date: 20161208
  Transmission Date: 20170207
  Serious: No
  Sender: FDA-Public Use
  Company Number: US-AMGEN-USASL2016172331

PATIENT
  Age: 55 Year
  Sex: Female

DRUGS (1)
  1. ENBREL [Suspect]
     Active Substance: ETANERCEPT
     Indication: RHEUMATOID ARTHRITIS
     Dosage: 50 MG, QWK
     Route: 065

REACTIONS (7)
  - Unevaluable event [Unknown]
  - Pain [Unknown]
  - Mobility decreased [Unknown]
  - Wrong device dispensed [Unknown]
  - Cough [Unknown]
  - Circumstance or information capable of leading to medication error [Unknown]
  - Inflammation [Unknown]
